FAERS Safety Report 5589317-5 (Version None)
Quarter: 2008Q1

REPORT INFORMATION
  Report Type: 
  Country: None (occurrence: None)
  Receive Date: 20080114
  Receipt Date: 20080107
  Transmission Date: 20080703
  Serious: Yes (Death)
  Sender: FDA-Public Use
  Company Number: US-AVENTIS-200810130US

PATIENT
  Age: 45 Year
  Sex: Male

DRUGS (1)
  1. ALLEGRA D 24 HOUR [Suspect]
     Dosage: DOSE: 1 PILL
     Route: 048
     Dates: start: 20071101, end: 20071208

REACTIONS (1)
  - MYOCARDIAL INFARCTION [None]
